FAERS Safety Report 24349666 (Version 1)
Quarter: 2024Q3

REPORT INFORMATION
  Report Type: Other
  Country: GB (occurrence: GB)
  Receive Date: 20240923
  Receipt Date: 20240923
  Transmission Date: 20241016
  Serious: Yes (Death, Hospitalization, Other)
  Sender: STRIDES
  Company Number: None

PATIENT
  Sex: Male

DRUGS (3)
  1. PREDNISOLONE [Suspect]
     Active Substance: PREDNISOLONE
     Indication: Renal transplant
     Dosage: 5 MILLIGRAM, QD (STRIDE), TABLET
     Route: 048
  2. TACROLIMUS [Suspect]
     Active Substance: TACROLIMUS
     Indication: Product used for unknown indication
     Dosage: 1 MILLIGRAM, QD (0.5 MG, BD)
     Route: 048
  3. TACROLIMUS [Suspect]
     Active Substance: TACROLIMUS
     Dosage: 2 MILLIGRAM, QD (1 MG, BID)
     Route: 048

REACTIONS (4)
  - Death [Fatal]
  - Neoplasm malignant [Unknown]
  - Sepsis [Unknown]
  - Intentional overdose [Unknown]

NARRATIVE: CASE EVENT DATE: 20240901
